FAERS Safety Report 7361890-6 (Version None)
Quarter: 2011Q1

REPORT INFORMATION
  Report Type: 
  Country: None (occurrence: None)
  Receive Date: 20110318
  Receipt Date: 20110311
  Transmission Date: 20110831
  Serious: Yes (Other)
  Sender: FDA-Public Use
  Company Number: BR-PFIZER INC-2011054275

PATIENT
  Age: 26 Year
  Sex: Female
  Weight: 73 kg

DRUGS (1)
  1. DEPO-PROVERA [Suspect]
     Indication: CONTRACEPTION
     Dosage: UNK
     Route: 030
     Dates: start: 20070101

REACTIONS (4)
  - ANXIETY [None]
  - DEPRESSION [None]
  - WEIGHT INCREASED [None]
  - AMENORRHOEA [None]
